FAERS Safety Report 12464045 (Version 1)
Quarter: 2016Q2

REPORT INFORMATION
  Report Type: Spontaneous
  Country: US (occurrence: None)
  Receive Date: 20160613
  Receipt Date: 20160613
  Transmission Date: 20160815
  Serious: Yes (Hospitalization)
  Sender: FDA-Public Use
  Company Number: None

PATIENT
  Age: 57 Year
  Sex: Male
  Weight: 45.65 kg

DRUGS (10)
  1. PALBOCICLIB [Suspect]
     Active Substance: PALBOCICLIB
     Indication: HEAD AND NECK CANCER METASTATIC
     Dosage: 125 MG DAYS 1-21 OF 28 DAY PO
     Route: 048
     Dates: start: 20160204, end: 20160504
  2. LIDOCAINE-PRILOCAINE [Concomitant]
     Active Substance: LIDOCAINE\PRILOCAINE
  3. SENNA [Concomitant]
     Active Substance: SENNA LEAF\SENNOSIDES\SENNOSIDES A AND B
  4. PROCHLORPERAZINE MALEATE. [Concomitant]
     Active Substance: PROCHLORPERAZINE MALEATE
  5. CETUXIMAB [Suspect]
     Active Substance: CETUXIMAB
     Indication: HEAD AND NECK CANCER METASTATIC
     Dosage: 250 MG/M2 WEEKLY IV
     Route: 042
     Dates: start: 20160204, end: 20160505
  6. PREDNISONE. [Concomitant]
     Active Substance: PREDNISONE
  7. POLYETHYLENE GLYCOL [Concomitant]
     Active Substance: POLYETHYLENE GLYCOLS
  8. SERTRALINE HCL [Concomitant]
     Active Substance: SERTRALINE HYDROCHLORIDE
  9. MORPHINE [Concomitant]
     Active Substance: MORPHINE
  10. MIDODRINE [Concomitant]
     Active Substance: MIDODRINE

REACTIONS (3)
  - Cerebrovascular accident [None]
  - Facial paralysis [None]
  - Dysarthria [None]

NARRATIVE: CASE EVENT DATE: 20160602
